FAERS Safety Report 6704417-1 (Version None)
Quarter: 2010Q2

REPORT INFORMATION
  Report Type: 
  Country: None (occurrence: None)
  Receive Date: 20100423
  Receipt Date: 20100203
  Transmission Date: 20101027
  Serious: No
  Sender: FDA-Public Use
  Company Number: ALL1-2010-00610

PATIENT
  Age: 11 Year
  Sex: Female
  Weight: 49 kg

DRUGS (4)
  1. VYVANSE [Suspect]
     Indication: ATTENTION DEFICIT/HYPERACTIVITY DISORDER
     Dosage: 50 MG, 1X/DAY:QD, ORAL
     Route: 048
     Dates: start: 20090101
  2. MUCELEX POWDER SOLVENT [Concomitant]
  3. ABILIFY [Concomitant]
  4. INTUNIV [Concomitant]

REACTIONS (7)
  - DISTURBANCE IN ATTENTION [None]
  - MUSCLE TWITCHING [None]
  - NASOPHARYNGITIS [None]
  - NEGATIVISM [None]
  - NERVOUSNESS [None]
  - PRURITUS [None]
  - PSYCHOMOTOR HYPERACTIVITY [None]
